FAERS Safety Report 14302502 (Version 1)
Quarter: 2017Q4

REPORT INFORMATION
  Report Type: Spontaneous
  Country: US (occurrence: US)
  Receive Date: 20171219
  Receipt Date: 20171219
  Transmission Date: 20180321
  Serious: Yes (Other)
  Sender: FDA-Public Use
  Company Number: None

PATIENT
  Age: 53 Year
  Sex: Female
  Weight: 68.4 kg

DRUGS (24)
  1. ATARAX [Concomitant]
     Active Substance: HYDROXYZINE HYDROCHLORIDE
  2. EQUATE SINUS AND ALLERGY [Concomitant]
  3. VITAMIN C [Concomitant]
     Active Substance: ASCORBIC ACID
  4. FLEXERIL [Concomitant]
     Active Substance: CYCLOBENZAPRINE HYDROCHLORIDE
  5. PLAQUENIL [Concomitant]
     Active Substance: HYDROXYCHLOROQUINE SULFATE
  6. INCRUSE INHALER [Concomitant]
  7. ALBUTEROL INHALER [Concomitant]
     Active Substance: ALBUTEROL
  8. MOMETASONE FUROATE. [Concomitant]
     Active Substance: MOMETASONE FUROATE
  9. MELATONIN [Concomitant]
     Active Substance: MELATONIN
  10. ZOVIRAX [Concomitant]
     Active Substance: ACYCLOVIR
  11. ZYRTEC [Concomitant]
     Active Substance: CETIRIZINE HYDROCHLORIDE
  12. RANITIDINE. [Concomitant]
     Active Substance: RANITIDINE
  13. MUCINEX [Concomitant]
     Active Substance: GUAIFENESIN
  14. BISOPROLOL FUMARATE. [Concomitant]
     Active Substance: BISOPROLOL FUMARATE
  15. MULTI-VITAMINS [Concomitant]
  16. SLOW-MAG [Concomitant]
     Active Substance: MAGNESIUM CHLORIDE
  17. MODAFINIL. [Concomitant]
     Active Substance: MODAFINIL
  18. L-GLUTAMINE /00503401/ [Concomitant]
     Active Substance: GLUTAMINE
  19. PROLIA [Suspect]
     Active Substance: DENOSUMAB
     Indication: OSTEOPOROSIS
     Dosage: ?          OTHER FREQUENCY:TWICE A YEAR;?
     Route: 058
     Dates: start: 20160404, end: 20170907
  20. LISINOPRIL. [Concomitant]
     Active Substance: LISINOPRIL
  21. NORCO [Concomitant]
     Active Substance: ACETAMINOPHEN\HYDROCODONE BITARTRATE
  22. K2 [Concomitant]
     Active Substance: JWH-018
  23. TURMERIC [Concomitant]
     Active Substance: HERBALS\TURMERIC
  24. CALTRATE [Concomitant]
     Active Substance: CALCIUM CARBONATE

REACTIONS (10)
  - Bronchitis [None]
  - Myalgia [None]
  - Infection [None]
  - Eczema [None]
  - Fatigue [None]
  - Renal impairment [None]
  - Blood cholesterol increased [None]
  - Pruritus [None]
  - Sinusitis [None]
  - Ear infection [None]

NARRATIVE: CASE EVENT DATE: 20160422
